FAERS Safety Report 4729332-4 (Version None)
Quarter: 2005Q3

REPORT INFORMATION
  Report Type: 
  Country: None (occurrence: None)
  Receive Date: 20050729
  Receipt Date: 20050720
  Transmission Date: 20060218
  Serious: Yes (Death, Life-Threatening)
  Sender: FDA-Public Use
  Company Number: JP-JNJFOC-20050602244

PATIENT
  Sex: Male

DRUGS (11)
  1. ITRIZOLE [Suspect]
     Route: 048
  2. ITRIZOLE [Suspect]
     Indication: ONYCHOMYCOSIS
     Route: 048
  3. RANITIDINE HYDROCHLORIDE [Concomitant]
     Route: 048
  4. BIFIDOBACTERIUM [Concomitant]
     Indication: CONSTIPATION
     Route: 048
  5. ALLPURINOL [Concomitant]
     Route: 048
  6. FUROSEMIDE [Concomitant]
     Route: 048
  7. FUROSEMIDE [Concomitant]
     Indication: CARDIAC FAILURE CHRONIC
     Route: 048
  8. AMLODIPINE BESYLATE [Concomitant]
     Indication: PULMONARY TUBERCULOSIS
     Route: 048
  9. ACARBOSE [Concomitant]
     Indication: DIABETES MELLITUS
     Route: 048
  10. NITROGLYCERIN [Concomitant]
     Route: 061
  11. NITROGLYCERIN [Concomitant]
     Indication: CARDIAC FAILURE CHRONIC
     Route: 061

REACTIONS (9)
  - CARDIAC FAILURE [None]
  - CARDIO-RESPIRATORY ARREST [None]
  - CHRONIC RESPIRATORY FAILURE [None]
  - DEPRESSED LEVEL OF CONSCIOUSNESS [None]
  - ENTERITIS [None]
  - HYPERCAPNIA [None]
  - OEDEMA PERIPHERAL [None]
  - PRURITUS [None]
  - RESPIRATORY TRACT INFECTION [None]
